FAERS Safety Report 20967307 (Version 2)
Quarter: 2022Q3

REPORT INFORMATION
  Report Type: Report from Study
  Country: IT (occurrence: IT)
  Receive Date: 20220616
  Receipt Date: 20220802
  Transmission Date: 20221026
  Serious: Yes (Death, Other)
  Sender: FDA-Public Use
  Company Number: IT-AMGEN-ITANI2022101786

PATIENT
  Age: 59 Year
  Sex: Female

DRUGS (1)
  1. SOTORASIB [Suspect]
     Active Substance: SOTORASIB
     Indication: Non-small cell lung cancer
     Dosage: UNK
     Route: 065

REACTIONS (1)
  - Non-small cell lung cancer [Fatal]

NARRATIVE: CASE EVENT DATE: 20220530
